FAERS Safety Report 15750822 (Version 1)
Quarter: 2018Q4

REPORT INFORMATION
  Report Type: Spontaneous
  Country: US (occurrence: US)
  Receive Date: 20181206
  Receipt Date: 20181206
  Transmission Date: 20190205
  Serious: Yes (Other)
  Sender: FDA-Public Use
  Company Number: None

PATIENT
  Age: 55 Year
  Sex: Female
  Weight: 108 kg

DRUGS (3)
  1. AMLODIPINE BESYLATE. [Suspect]
     Active Substance: AMLODIPINE BESYLATE
     Indication: HYPERTENSION
     Dosage: ?          QUANTITY:2 TABLET(S);?
     Route: 048
     Dates: start: 20120131, end: 20180831
  2. CHLORTHALID [Suspect]
     Active Substance: CHLORTHALIDONE
  3. LISINOPRIL. [Suspect]
     Active Substance: LISINOPRIL

REACTIONS (5)
  - Joint stiffness [None]
  - Arthritis [None]
  - Condition aggravated [None]
  - Arthralgia [None]
  - Drug ineffective [None]

NARRATIVE: CASE EVENT DATE: 20181015
